FAERS Safety Report 13179679 (Version 3)
Quarter: 2017Q1

REPORT INFORMATION
  Report Type: Spontaneous
  Country: US (occurrence: US)
  Receive Date: 20170202
  Receipt Date: 20170222
  Transmission Date: 20170428
  Serious: Yes (Hospitalization)
  Sender: FDA-Public Use
  Company Number: US-GLAXOSMITHKLINE-US2017GSK013670

PATIENT
  Sex: Male
  Weight: 90.7 kg

DRUGS (6)
  1. GABAPENTIN. [Suspect]
     Active Substance: GABAPENTIN
     Indication: DEPRESSION
     Dosage: 400 MG, QD
     Dates: start: 20140215
  2. WELLBUTRIN [Suspect]
     Active Substance: BUPROPION HYDROCHLORIDE
     Indication: MAJOR DEPRESSION
     Dosage: 300 MG, UNK
     Dates: start: 20140130
  3. GABAPENTIN. [Suspect]
     Active Substance: GABAPENTIN
     Indication: MAJOR DEPRESSION
  4. NEURONTIN [Suspect]
     Active Substance: GABAPENTIN
     Indication: RESTLESS LEGS SYNDROME
  5. NEURONTIN [Suspect]
     Active Substance: GABAPENTIN
     Indication: MAJOR DEPRESSION
     Dosage: 400 MG, QD
     Dates: start: 20140215
  6. NEURONTIN [Suspect]
     Active Substance: GABAPENTIN
     Indication: ANXIETY

REACTIONS (7)
  - Restless legs syndrome [Unknown]
  - Anxiety [Unknown]
  - Weight abnormal [Unknown]
  - Insomnia [Unknown]
  - Pupillary reflex impaired [Unknown]
  - Neurological examination abnormal [Unknown]
  - Impaired driving ability [Unknown]
